FAERS Safety Report 5282303-4 (Version None)
Quarter: 2007Q1

REPORT INFORMATION
  Report Type: 
  Country: None (occurrence: None)
  Receive Date: 20070331
  Receipt Date: 20070320
  Transmission Date: 20070707
  Serious: Yes (Other)
  Sender: FDA-Public Use
  Company Number: US-PFIZER INC-2007024016

PATIENT
  Sex: Female

DRUGS (2)
  1. REVATIO [Suspect]
     Indication: PULMONARY HYPERTENSION
  2. TRACLEER [Suspect]
     Indication: PULMONARY HYPERTENSION

REACTIONS (6)
  - ANOREXIA [None]
  - BALANCE DISORDER [None]
  - HEADACHE [None]
  - MUSCULAR WEAKNESS [None]
  - PHOTOPSIA [None]
  - VISUAL DISTURBANCE [None]
